FAERS Safety Report 20936726 (Version 1)
Quarter: 2022Q2

REPORT INFORMATION
  Report Type: Spontaneous
  Country: US (occurrence: US)
  Receive Date: 20220609
  Receipt Date: 20220609
  Transmission Date: 20220721
  Serious: No
  Sender: FDA-Public Use
  Company Number: US-DEXPHARM-20210771

PATIENT
  Age: 70 Year
  Sex: Female

DRUGS (1)
  1. PERIOCHIP [Suspect]
     Active Substance: CHLORHEXIDINE GLUCONATE
     Dosage: 2.5 CHIP, 2 CHIPS WERE PLACED
     Route: 004

REACTIONS (1)
  - Pain [Recovering/Resolving]
